FAERS Safety Report 6297209-1 (Version None)
Quarter: 2009Q3

REPORT INFORMATION
  Report Type: 
  Country: None (occurrence: None)
  Receive Date: 20090805
  Receipt Date: 20070605
  Transmission Date: 20100115
  Serious: Yes (Other)
  Sender: FDA-Public Use
  Company Number: US-ASTRAZENECA-2006UW24554

PATIENT
  Age: 13251 Day
  Sex: Male
  Weight: 99.8 kg

DRUGS (11)
  1. SEROQUEL [Suspect]
     Indication: BIPOLAR DISORDER
     Route: 048
     Dates: start: 19960601
  2. SEROQUEL [Suspect]
     Dosage: 100MG -300MG
     Route: 048
     Dates: start: 20040312
  3. ZYPREXA [Concomitant]
     Dates: start: 20040101, end: 20060101
  4. CELEXA [Concomitant]
     Dosage: 20MG -40MG
     Dates: start: 20031121
  5. SONATA [Concomitant]
     Dates: start: 20031125
  6. DOXAZOSIN MESYLATE [Concomitant]
     Dates: start: 20031204
  7. ALPRAZOLAM [Concomitant]
     Dosage: 1MG -2 MG
     Dates: start: 20031208
  8. LAMICTAL [Concomitant]
     Dosage: 15MG -100MG
     Dates: start: 20040119
  9. EFFEXOR [Concomitant]
     Dosage: 37.5MG -75MG
     Dates: start: 20040119
  10. AMBIEN [Concomitant]
     Indication: INSOMNIA
     Dosage: 10MG -15MG
     Dates: start: 20040122
  11. NEXIUM [Concomitant]
     Dates: start: 20040127

REACTIONS (4)
  - DIABETES MELLITUS [None]
  - DIABETES MELLITUS INADEQUATE CONTROL [None]
  - DIABETIC NEUROPATHY [None]
  - INSULIN-REQUIRING TYPE 2 DIABETES MELLITUS [None]
